FAERS Safety Report 14694322 (Version 4)
Quarter: 2018Q2

REPORT INFORMATION
  Report Type: Spontaneous
  Country: PT (occurrence: PT)
  Receive Date: 20180329
  Receipt Date: 20180606
  Transmission Date: 20180711
  Serious: Yes (Hospitalization, Other)
  Sender: FDA-Public Use
  Company Number: PT-PFIZER INC-2018127643

PATIENT
  Sex: Male

DRUGS (36)
  1. ATORVASTATIN CALCIUM. [Suspect]
     Active Substance: ATORVASTATIN CALCIUM
     Dosage: 20 MG, UNK (NIGHT)
     Route: 065
  2. FUROSEMIDE. [Suspect]
     Active Substance: FUROSEMIDE
     Dosage: 40 MG, UNK (MORNING)
  3. WARFARIN [Suspect]
     Active Substance: WARFARIN
     Dosage: 2.5 MG, UNK (1 H BEFORE DINNER)
  4. AMLODIPINE AND VALSARTAN [Concomitant]
     Active Substance: AMLODIPINE\VALSARTAN
     Dosage: UNK
  5. INSULIN [Concomitant]
     Active Substance: INSULIN NOS
     Dosage: UNK (30 UNITS)
  6. ATORVASTATIN CALCIUM. [Suspect]
     Active Substance: ATORVASTATIN CALCIUM
     Dosage: 20 MG, UNK (NIGHT)
     Route: 065
  7. ATORVASTATIN CALCIUM. [Suspect]
     Active Substance: ATORVASTATIN CALCIUM
     Dosage: UNK (WRONG DOSAGE)
  8. BETAHISTINE [Concomitant]
     Active Substance: BETAHISTINE
     Dosage: 24 MG, DAILY
  9. VILDAGLIPTIN [Concomitant]
     Active Substance: VILDAGLIPTIN
     Indication: DIABETES MELLITUS
     Dosage: 50 MG, 2X/DAY
     Route: 048
  10. CARVEDILOL. [Concomitant]
     Active Substance: CARVEDILOL
     Dosage: 6.25 MG, 2X/DAY
  11. PANTOPRAZOLE [Suspect]
     Active Substance: PANTOPRAZOLE
     Dosage: 20 MG, UNK (FASTING)
     Route: 065
  12. FUROSEMIDE. [Suspect]
     Active Substance: FUROSEMIDE
     Dosage: 20 MG, 3X/DAY
     Route: 042
  13. WARFARIN [Suspect]
     Active Substance: WARFARIN
     Dosage: 5 MG, UNK (NIGHT)
     Route: 065
  14. INSULIN [Concomitant]
     Active Substance: INSULIN NOS
     Dosage: UNK (35 UNITS)
  15. WARFARIN [Suspect]
     Active Substance: WARFARIN
     Dosage: 2.5 MG, UNK (1 H BEFORE DINNER)
  16. POTASSIUM CHLORIDE. [Suspect]
     Active Substance: POTASSIUM CHLORIDE
     Dosage: 600 MG, 2X/DAY
     Route: 065
  17. CARVEDILOL. [Concomitant]
     Active Substance: CARVEDILOL
     Dosage: 6.25 MG, 2X/DAY
  18. PANTOPRAZOLE [Suspect]
     Active Substance: PANTOPRAZOLE
     Dosage: 20 MG, UNK (FASTING)
     Route: 065
  19. QUETIAPINE FUMARATE. [Suspect]
     Active Substance: QUETIAPINE FUMARATE
     Dosage: 50 MG, UNK (NIGHT)
     Route: 065
  20. AMLODIPINE AND VALSARTAN [Concomitant]
     Active Substance: AMLODIPINE\VALSARTAN
     Dosage: UNK (5/160 MG, MORNING)
  21. PANTOPRAZOLE [Suspect]
     Active Substance: PANTOPRAZOLE
     Dosage: 20 MG, UNK (FASTING)
     Route: 065
  22. ATORVASTATIN CALCIUM. [Suspect]
     Active Substance: ATORVASTATIN CALCIUM
     Dosage: 20 MG, UNK (NIGHT)
     Route: 065
  23. ATORVASTATIN CALCIUM. [Suspect]
     Active Substance: ATORVASTATIN CALCIUM
     Dosage: 10 MG, UNK
  24. QUETIAPINE FUMARATE. [Suspect]
     Active Substance: QUETIAPINE FUMARATE
     Dosage: 50 MG, UNK (MORNING)
     Route: 065
  25. FUROSEMIDE. [Suspect]
     Active Substance: FUROSEMIDE
     Dosage: 40 MG, UNK (MORNING)
     Route: 065
  26. VILDAGLIPTIN [Concomitant]
     Active Substance: VILDAGLIPTIN
     Dosage: 50 MG, 2X/DAY
     Route: 048
  27. INSULIN [Concomitant]
     Active Substance: INSULIN NOS
     Dosage: UNK (WRONG DOSAGE)
  28. CAPTOPRIL. [Concomitant]
     Active Substance: CAPTOPRIL
     Dosage: 12.5 MG, 3X/DAY
  29. QUETIAPINE FUMARATE. [Suspect]
     Active Substance: QUETIAPINE FUMARATE
     Dosage: 25 MG, UNK (NIGHT)
  30. FUROSEMIDE. [Suspect]
     Active Substance: FUROSEMIDE
     Dosage: 60 MG, UNK (40 MG, MORNING ? 20 MG, AFTERNOON)
  31. VILDAGLIPTIN [Concomitant]
     Active Substance: VILDAGLIPTIN
     Dosage: 50 MG, 2X/DAY
     Route: 048
  32. IRBESARTAN. [Concomitant]
     Active Substance: IRBESARTAN
     Dosage: 300 MG, UNK (NIGHT)
  33. INSULIN [Concomitant]
     Active Substance: INSULIN NOS
     Dosage: UNK (25 UNITS, MORNING)
  34. INSULIN [Concomitant]
     Active Substance: INSULIN NOS
     Dosage: UNK (10 UNITS)
  35. CARVEDILOL. [Concomitant]
     Active Substance: CARVEDILOL
     Dosage: 6.25 MG, UNK
  36. CAPTOPRIL. [Concomitant]
     Active Substance: CAPTOPRIL
     Dosage: 12.5 MG, 3X/DAY

REACTIONS (3)
  - Cardiac failure [Unknown]
  - Intercepted medication error [Unknown]
  - Incorrect drug administration rate [Unknown]
